FAERS Safety Report 8353437-2 (Version None)
Quarter: 2012Q2

REPORT INFORMATION
  Report Type: 
  Country: None (occurrence: None)
  Receive Date: 20120511
  Receipt Date: 20111104
  Transmission Date: 20120825
  Serious: No
  Sender: FDA-Public Use
  Company Number: US-GLAXOSMITHKLINE-A0914883A

PATIENT
  Age: 70 Year
  Sex: Female

DRUGS (3)
  1. METFORMIN HCL [Concomitant]
  2. GLYBURIDE [Concomitant]
  3. TYKERB [Suspect]
     Indication: BREAST CANCER
     Dosage: 1000MGD PER DAY
     Route: 048
     Dates: start: 20110216

REACTIONS (23)
  - DYSSTASIA [None]
  - LOCAL SWELLING [None]
  - POOR QUALITY SLEEP [None]
  - OEDEMA PERIPHERAL [None]
  - LIP PAIN [None]
  - PAIN OF SKIN [None]
  - MALAISE [None]
  - ERYTHEMA [None]
  - MEDICATION ERROR [None]
  - OCULAR HYPERAEMIA [None]
  - RASH [None]
  - TOOTHACHE [None]
  - LIVER DISORDER [None]
  - LACRIMATION INCREASED [None]
  - PRURITUS [None]
  - FACIAL PAIN [None]
  - FATIGUE [None]
  - DISEASE PROGRESSION [None]
  - PAIN IN EXTREMITY [None]
  - EYE PAIN [None]
  - HAIR DISORDER [None]
  - HOT FLUSH [None]
  - ASTHENIA [None]
